FAERS Safety Report 13271638 (Version 1)
Quarter: 2017Q1

REPORT INFORMATION
  Report Type: Spontaneous
  Country: DE (occurrence: DE)
  Receive Date: 20170227
  Receipt Date: 20170227
  Transmission Date: 20170428
  Serious: Yes (Other)
  Sender: FDA-Public Use
  Company Number: DE-CIPLA LTD.-2017DE02192

PATIENT

DRUGS (4)
  1. CISPLATIN. [Suspect]
     Active Substance: CISPLATIN
     Indication: OVARIAN EPITHELIAL CANCER
     Dosage: 7.5 MG/M2, 13 CYCLES ONCE IN 5 TO 12 WEEKS AT 12 MM HG
     Route: 033
     Dates: start: 201410, end: 201608
  2. TAMOXIFEN [Suspect]
     Active Substance: TAMOXIFEN
     Indication: OVARIAN EPITHELIAL CANCER
     Dosage: 20 MG, QD
     Route: 065
     Dates: start: 201510, end: 201605
  3. DOXORUBICIN [Suspect]
     Active Substance: DOXORUBICIN
     Indication: OVARIAN EPITHELIAL CANCER
     Dosage: 1.5 MG/M2, 13 CYCLES ONCE IN 5 TO 12 WEEKS AT 12 MM HG
     Route: 033
     Dates: start: 201410, end: 201608
  4. CARBOPLATIN. [Suspect]
     Active Substance: CARBOPLATIN
     Indication: OVARIAN EPITHELIAL CANCER
     Dosage: AUC 3, ON DAY 2 AFTER EACH PIPAC
     Route: 042
     Dates: start: 201605

REACTIONS (5)
  - Off label use [Unknown]
  - Pleural effusion [Unknown]
  - Pyrexia [Unknown]
  - Disease progression [Unknown]
  - Abdominal pain [Unknown]
